FAERS Safety Report 6068929-9 (Version None)
Quarter: 2009Q1

REPORT INFORMATION
  Report Type: 
  Country: None (occurrence: None)
  Receive Date: 20090206
  Receipt Date: 20090130
  Transmission Date: 20090719
  Serious: Yes (Hospitalization)
  Sender: FDA-Public Use
  Company Number: AU-ASTRAZENECA-2009AP00862

PATIENT
  Age: 44 Year
  Sex: Female

DRUGS (1)
  1. EMLA [Suspect]
     Dosage: THREE LARGE TUBES OF 30G (2.250G LIDOCAINE AND 2.250G PRILOCAINE)
     Route: 061

REACTIONS (3)
  - CYANOSIS [None]
  - FATIGUE [None]
  - METHAEMOGLOBINAEMIA [None]
